FAERS Safety Report 24788849 (Version 1)
Quarter: 2024Q4

REPORT INFORMATION
  Report Type: Spontaneous
  Country: NL (occurrence: NL)
  Receive Date: 20241230
  Receipt Date: 20241230
  Transmission Date: 20250115
  Serious: Yes (Life-Threatening)
  Sender: TEVA
  Company Number: None

PATIENT
  Age: 68 Year
  Sex: Female
  Weight: 47 kg

DRUGS (1)
  1. MIRTAZAPINE [Suspect]
     Active Substance: MIRTAZAPINE
     Indication: Insomnia
     Dosage: BRAND NAME NOT SPECIFIED 1 PER DAY
     Route: 065
     Dates: start: 20241205, end: 20241209

REACTIONS (4)
  - Suicide attempt [Recovering/Resolving]
  - Anxiety [Unknown]
  - Speech disorder [Unknown]
  - Eye movement disorder [Unknown]
